FAERS Safety Report 17230941 (Version 1)
Quarter: 2020Q1

REPORT INFORMATION
  Report Type: Spontaneous
  Country: TR (occurrence: TR)
  Receive Date: 20200103
  Receipt Date: 20200103
  Transmission Date: 20200409
  Serious: Yes (Other)
  Sender: FDA-Public Use
  Company Number: TR-JNJFOC-20191243261

PATIENT
  Age: 52 Year

DRUGS (3)
  1. LITHIUM. [Suspect]
     Active Substance: LITHIUM
     Indication: MANIA
     Route: 065
  2. RISPERDAL CONSTA [Suspect]
     Active Substance: RISPERIDONE
     Indication: MANIA
     Route: 030
  3. AMISULPRIDE [Suspect]
     Active Substance: AMISULPRIDE
     Indication: MANIA
     Route: 065

REACTIONS (8)
  - Social avoidant behaviour [Unknown]
  - Cognitive disorder [Recovered/Resolved]
  - Reduced facial expression [Unknown]
  - Psychomotor skills impaired [Recovering/Resolving]
  - Extrapyramidal disorder [Unknown]
  - Breast cancer [Unknown]
  - Hyperprolactinaemia [Recovering/Resolving]
  - Dysphoria [Unknown]

NARRATIVE: CASE EVENT DATE: 2015
